FAERS Safety Report 7121340-1 (Version None)
Quarter: 2010Q4

REPORT INFORMATION
  Report Type: 
  Country: None (occurrence: None)
  Receive Date: 20101119
  Receipt Date: 20101119
  Transmission Date: 20110411
  Serious: Yes (Other)
  Sender: FDA-Public Use
  Company Number: None

PATIENT
  Age: 51 Year
  Sex: Male
  Weight: 75.7507 kg

DRUGS (2)
  1. PROAIR HFA [Suspect]
     Indication: ASTHMA
     Dosage: 1 - 2 PUFFS AS NEEDED INHAL
     Route: 055
     Dates: start: 20101015, end: 20101101
  2. PROAIR HFA [Suspect]

REACTIONS (1)
  - PRODUCT QUALITY ISSUE [None]
